FAERS Safety Report 21632215 (Version 1)
Quarter: 2022Q4

REPORT INFORMATION
  Report Type: Spontaneous
  Country: US (occurrence: None)
  Receive Date: 20221122
  Receipt Date: 20221122
  Transmission Date: 20230113
  Serious: Yes (Death, Hospitalization)
  Sender: FDA-Public Use
  Company Number: None

PATIENT
  Age: 67 Year
  Sex: Male
  Weight: 74.5 kg

DRUGS (3)
  1. CISPLATIN [Suspect]
     Active Substance: CISPLATIN
     Dates: end: 20201023
  2. GEMCITABINE HYDROCHLORIDE [Suspect]
     Active Substance: GEMCITABINE HYDROCHLORIDE
     Dates: end: 20201023
  3. PACLITAXEL [Suspect]
     Active Substance: PACLITAXEL
     Dates: end: 20201002

REACTIONS (16)
  - Abdominal pain [None]
  - Chromaturia [None]
  - Abdominal pain upper [None]
  - Urine output decreased [None]
  - Dyspnoea exertional [None]
  - Abdominal distension [None]
  - Nausea [None]
  - Fatigue [None]
  - Malaise [None]
  - Dry skin [None]
  - Pallor [None]
  - Hepatomegaly [None]
  - Malignant neoplasm progression [None]
  - Biliary obstruction [None]
  - Hepatic cirrhosis [None]
  - Cholelithiasis [None]

NARRATIVE: CASE EVENT DATE: 20221110
